FAERS Safety Report 6240459-0 (Version None)
Quarter: 2009Q2

REPORT INFORMATION
  Report Type: 
  Country: None (occurrence: None)
  Receive Date: 20090623
  Receipt Date: 20090305
  Transmission Date: 20091009
  Serious: No
  Sender: FDA-Public Use
  Company Number: US-ASTRAZENECA-2009UW05937

PATIENT
  Age: 70 Year
  Sex: Female
  Weight: 90.7 kg

DRUGS (3)
  1. PULMICORT RESPULES [Suspect]
     Indication: CHRONIC OBSTRUCTIVE PULMONARY DISEASE
     Dosage: 0.5 MG, TWICE DAILY
     Route: 055
  2. ALBUTEROL [Concomitant]
  3. OXYGEN [Concomitant]

REACTIONS (2)
  - HYPOPHAGIA [None]
  - OROPHARYNGEAL PAIN [None]
